FAERS Safety Report 5835293-7 (Version None)
Quarter: 2008Q3

REPORT INFORMATION
  Report Type: 
  Country: None (occurrence: None)
  Receive Date: 20080804
  Receipt Date: 20080630
  Transmission Date: 20090109
  Serious: Yes (Other)
  Sender: FDA-Public Use
  Company Number: CHPA2008US11274

PATIENT
  Age: 68 Year
  Sex: Female

DRUGS (1)
  1. GAS-X EXTSTR CHEW TABS PEPPERMINT CREME (NCH)(SIMETHICONE) CHEWABLE TA [Suspect]
     Indication: FLATULENCE
     Dosage: 7 TABLETS IN 24 HOURS, ORAL
     Route: 048
     Dates: start: 20080630, end: 20080630

REACTIONS (3)
  - DIZZINESS [None]
  - OVERDOSE [None]
  - SYNCOPE [None]
